FAERS Safety Report 8326013-5 (Version None)
Quarter: 2012Q2

REPORT INFORMATION
  Report Type: 
  Country: None (occurrence: None)
  Receive Date: 20120501
  Receipt Date: 20100526
  Transmission Date: 20120825
  Serious: No
  Sender: FDA-Public Use
  Company Number: US-TEVA-2010002930

PATIENT
  Sex: Male
  Weight: 104.42 kg

DRUGS (17)
  1. DEPAKOTE [Concomitant]
  2. COMBIVENT [Concomitant]
  3. ZOCOR [Concomitant]
  4. EFFEXOR [Concomitant]
  5. TICE BCG [Concomitant]
  6. NUVIGIL [Suspect]
     Indication: FATIGUE
     Dosage: 50 MILLIGRAM;
     Route: 048
     Dates: start: 20100525
  7. FLEXERIL [Concomitant]
  8. PRILOSEC [Concomitant]
     Dates: start: 19970101
  9. NEXIUM [Concomitant]
     Dates: start: 19990101
  10. BISACODYL [Concomitant]
  11. AMBIEN [Concomitant]
  12. REMERON [Concomitant]
  13. OXYCONTIN [Concomitant]
     Dates: start: 19990101
  14. CELEBREX [Concomitant]
  15. DOCUSATE [Concomitant]
  16. SEROQUEL [Concomitant]
  17. CLARITIN [Concomitant]

REACTIONS (1)
  - DRUG INEFFECTIVE FOR UNAPPROVED INDICATION [None]
